FAERS Safety Report 19245763 (Version 1)
Quarter: 2021Q2

REPORT INFORMATION
  Report Type: Report from Study
  Country: None (occurrence: NL)
  Receive Date: 20210511
  Receipt Date: 20210511
  Transmission Date: 20210717
  Serious: Yes (Other)
  Sender: FDA-Public Use
  Company Number: NL-ABBVIE-16K-114-1807743-00

PATIENT
  Age: 65 Year
  Sex: Female
  Weight: 48 kg

DRUGS (11)
  1. DUODOPA [Suspect]
     Active Substance: CARBIDOPA\LEVODOPA
     Indication: PARKINSON^S DISEASE
     Dosage: MORNING DOSE: 9.0, CONTINUOUS DOSE: 2.6, EXTRA DOSE: 1.0
     Route: 050
     Dates: start: 20161128
  2. LORAZEPAM. [Concomitant]
     Active Substance: LORAZEPAM
     Indication: PRODUCT USED FOR UNKNOWN INDICATION
     Route: 065
  3. MACROGOL [Concomitant]
     Active Substance: POLYETHYLENE GLYCOLS
     Indication: STOOL ANALYSIS
     Route: 065
  4. DUODOPA [Suspect]
     Active Substance: CARBIDOPA\LEVODOPA
     Dosage: MD 7.5 ML CD 2.8 ML / HOUR ED 1.4 ML. 16 HOUR ADMINISTRATION
     Route: 050
  5. SINEMET RET [Concomitant]
     Indication: PRODUCT USED FOR UNKNOWN INDICATION
  6. SINEMET [Concomitant]
     Active Substance: CARBIDOPA\LEVODOPA
     Indication: PRODUCT USED FOR UNKNOWN INDICATION
  7. DUODOPA [Suspect]
     Active Substance: CARBIDOPA\LEVODOPA
     Dosage: MD: 7.5, CD: 2.7, ED: 1.4
     Route: 050
  8. DUODOPA [Suspect]
     Active Substance: CARBIDOPA\LEVODOPA
     Dosage: MD 7.5, ED 1.2
     Route: 050
  9. RIVASTIGMINE. [Concomitant]
     Active Substance: RIVASTIGMINE
     Indication: RESTLESSNESS
     Dosage: 13.5 ML PER 24 HOURS
  10. OXAZEPAM. [Concomitant]
     Active Substance: OXAZEPAM
     Indication: PRODUCT USED FOR UNKNOWN INDICATION
  11. MOVICOLON [Concomitant]
     Active Substance: POLYETHYLENE GLYCOL 3350\POTASSIUM CHLORIDE\SODIUM BICARBONATE\SODIUM CHLORIDE
     Indication: DEFAECATION DISORDER

REACTIONS (60)
  - Muscle rigidity [Recovered/Resolved]
  - Wrong technique in product usage process [Unknown]
  - Speech disorder [Not Recovered/Not Resolved]
  - Emotional distress [Recovered/Resolved]
  - Fear [Not Recovered/Not Resolved]
  - Decreased appetite [Recovered/Resolved]
  - On and off phenomenon [Recovered/Resolved]
  - Anxiety [Recovered/Resolved]
  - On and off phenomenon [Not Recovered/Not Resolved]
  - Psychiatric symptom [Not Recovered/Not Resolved]
  - Myalgia [Not Recovered/Not Resolved]
  - Dystonia [Unknown]
  - Weight increased [Recovered/Resolved]
  - Bradykinesia [Recovered/Resolved]
  - Confusional state [Not Recovered/Not Resolved]
  - Tremor [Not Recovered/Not Resolved]
  - Dementia [Not Recovered/Not Resolved]
  - Stoma site discharge [Not Recovered/Not Resolved]
  - Muscle rigidity [Not Recovered/Not Resolved]
  - Nasopharyngitis [Recovering/Resolving]
  - Nervousness [Not Recovered/Not Resolved]
  - Pain [Not Recovered/Not Resolved]
  - Dyskinesia [Not Recovered/Not Resolved]
  - Unevaluable event [Unknown]
  - Stress [Not Recovered/Not Resolved]
  - Panic reaction [Not Recovered/Not Resolved]
  - Abnormal dreams [Recovered/Resolved]
  - Bradykinesia [Not Recovered/Not Resolved]
  - Therapeutic product effect variable [Recovered/Resolved]
  - Terminal insomnia [Not Recovered/Not Resolved]
  - Hallucination [Recovered/Resolved]
  - Abnormal dreams [Recovered/Resolved]
  - Gait disturbance [Not Recovered/Not Resolved]
  - Weight decreased [Recovered/Resolved]
  - Stoma site discharge [Recovering/Resolving]
  - Hyperkinesia [Not Recovered/Not Resolved]
  - Stoma site discharge [Recovered/Resolved]
  - Freezing phenomenon [Not Recovered/Not Resolved]
  - Hallucination [Recovered/Resolved]
  - Fine motor skill dysfunction [Not Recovered/Not Resolved]
  - Balance disorder [Not Recovered/Not Resolved]
  - Sleep talking [Not Recovered/Not Resolved]
  - Mood swings [Not Recovered/Not Resolved]
  - Feeding disorder [Not Recovered/Not Resolved]
  - Tremor [Recovered/Resolved]
  - Fear [Unknown]
  - Hallucination, visual [Recovered/Resolved]
  - Hallucination [Not Recovered/Not Resolved]
  - Euthanasia [Not Recovered/Not Resolved]
  - Restlessness [Not Recovered/Not Resolved]
  - Incorrect dose administered [Unknown]
  - Memory impairment [Not Recovered/Not Resolved]
  - Muscle spasms [Not Recovered/Not Resolved]
  - Cognitive disorder [Not Recovered/Not Resolved]
  - Frequent bowel movements [Unknown]
  - Infection [Not Recovered/Not Resolved]
  - Hallucination, visual [Not Recovered/Not Resolved]
  - Fall [Not Recovered/Not Resolved]
  - Dyskinesia [Recovered/Resolved]
  - Micturition urgency [Not Recovered/Not Resolved]

NARRATIVE: CASE EVENT DATE: 2016
